FAERS Safety Report 8986397 (Version 1)
Quarter: 2012Q4

REPORT INFORMATION
  Report Type: 
  Country: US (occurrence: US)
  Receive Date: 20121227
  Receipt Date: 20121227
  Transmission Date: 20130627
  Serious: No
  Sender: FDA-Public Use
  Company Number: US-BAYER-2012-135110

PATIENT
  Age: 81 Year
  Sex: Female
  Weight: 63.95 kg

DRUGS (3)
  1. ALEVE CAPLET/TABLET,MIDOL EXTENDED RELIEF CAPLET [Suspect]
     Indication: ARTHRITIS
     Dosage: 1 DF, QD
     Route: 048
     Dates: start: 2009
  2. SYNTHROID [Concomitant]
     Dosage: UNK
  3. NORVASC [Concomitant]
     Dosage: UNK

REACTIONS (1)
  - Incorrect drug administration duration [None]
